FAERS Safety Report 17856420 (Version 2)
Quarter: 2020Q2

REPORT INFORMATION
  Report Type: Spontaneous
  Country: FI (occurrence: FI)
  Receive Date: 20200603
  Receipt Date: 20200615
  Transmission Date: 20200714
  Serious: Yes (Other)
  Sender: FDA-Public Use
  Company Number: FI-AMGEN-FINSP2020086222

PATIENT
  Age: 74 Year
  Sex: Male
  Weight: 67 kg

DRUGS (7)
  1. ARANESP [Suspect]
     Active Substance: DARBEPOETIN ALFA
     Indication: HAEMOGLOBIN DECREASED
     Dosage: 30 UNIT, Q2WK
     Route: 065
  2. INSULIN [Concomitant]
     Active Substance: INSULIN NOS
  3. ARANESP [Suspect]
     Active Substance: DARBEPOETIN ALFA
     Dosage: 40 MICROGRAM, Q2WK
     Route: 065
  4. ARANESP [Suspect]
     Active Substance: DARBEPOETIN ALFA
     Dosage: 40 UNIT, Q3WK
     Route: 065
  5. ARANESP [Suspect]
     Active Substance: DARBEPOETIN ALFA
     Dosage: 40 UNIT, Q2WK
     Route: 065
  6. ARANESP [Suspect]
     Active Substance: DARBEPOETIN ALFA
     Dosage: 40 MICROGRAM, Q3WK
     Route: 065
  7. ARANESP [Suspect]
     Active Substance: DARBEPOETIN ALFA
     Dosage: 40 UNIT, Q2WK
     Route: 065

REACTIONS (10)
  - Wrong technique in product usage process [Unknown]
  - Device difficult to use [Unknown]
  - Dehydration [Recovering/Resolving]
  - Seizure [Unknown]
  - Femoral neck fracture [Unknown]
  - Femur fracture [Unknown]
  - Fall [Unknown]
  - Syncope [Unknown]
  - Haemoglobin decreased [Recovering/Resolving]
  - Dialysis related complication [Recovering/Resolving]

NARRATIVE: CASE EVENT DATE: 2019
